FAERS Safety Report 23709657 (Version 1)
Quarter: 2024Q2

REPORT INFORMATION
  Report Type: Spontaneous
  Country: US (occurrence: US)
  Receive Date: 20240404
  Receipt Date: 20240404
  Transmission Date: 20240716
  Serious: No
  Sender: FDA-Public Use
  Company Number: US-BAUSCHBL-2024BNL004053

PATIENT
  Age: 74 Year
  Sex: Male

DRUGS (1)
  1. ERYTHROMYCIN [Suspect]
     Active Substance: ERYTHROMYCIN
     Indication: Product used for unknown indication
     Route: 047
     Dates: start: 20240328

REACTIONS (3)
  - Swelling of eyelid [Not Recovered/Not Resolved]
  - Eye pain [Unknown]
  - Wrong dose [Unknown]

NARRATIVE: CASE EVENT DATE: 20240328
